FAERS Safety Report 16447277 (Version 3)
Quarter: 2019Q3

REPORT INFORMATION
  Report Type: Report from Study
  Country: US (occurrence: US)
  Receive Date: 20190618
  Receipt Date: 20190921
  Transmission Date: 20191004
  Serious: No
  Sender: FDA-Public Use
  Company Number: PHEH2019US025435

PATIENT
  Age: 15 Year
  Sex: Female

DRUGS (1)
  1. GILENYA [Suspect]
     Active Substance: FINGOLIMOD HYDROCHLORIDE
     Indication: MULTIPLE SCLEROSIS
     Dosage: 0.5 MG, QD
     Route: 048
     Dates: start: 20180702

REACTIONS (7)
  - Epistaxis [Recovering/Resolving]
  - Feeling hot [Not Recovered/Not Resolved]
  - Hypermetropia [Not Recovered/Not Resolved]
  - Nasopharyngitis [Recovering/Resolving]
  - Anxiety [Not Recovered/Not Resolved]
  - Rhinorrhoea [Recovering/Resolving]
  - Hypertension [Recovering/Resolving]

NARRATIVE: CASE EVENT DATE: 20190601
